FAERS Safety Report 16919956 (Version 2)
Quarter: 2019Q4

REPORT INFORMATION
  Report Type: Spontaneous
  Country: FR (occurrence: FR)
  Receive Date: 20191015
  Receipt Date: 20191227
  Transmission Date: 20200122
  Serious: Yes (Hospitalization)
  Sender: FDA-Public Use
  Company Number: FR-TEVA-2019-FR-1121307

PATIENT
  Age: 64 Year
  Sex: Male
  Weight: 63 kg

DRUGS (10)
  1. MIRTAZAPINE. [Suspect]
     Active Substance: MIRTAZAPINE
     Indication: DEPRESSION
     Route: 048
  2. CLOZAPINE. [Interacting]
     Active Substance: CLOZAPINE
     Indication: BEHAVIOUR DISORDER
     Route: 048
  3. MACROGOL (DISTEARATE DE) [Concomitant]
     Active Substance: POLYETHYLENE GLYCOLS
     Route: 048
  4. SPASFON, COMPRIME ENROBE [Concomitant]
     Active Substance: PHLOROGLUCINOL\1,3,5-TRIMETHOXYBENZENE
     Route: 048
  5. SINEMET 100 MG/10 MG, COMPRIME SECABLE [Concomitant]
     Indication: PARKINSONISM
     Route: 048
  6. LORMETAZEPAM [Interacting]
     Active Substance: LORMETAZEPAM
     Indication: PRODUCT USED FOR UNKNOWN INDICATION
     Route: 048
  7. FORADIL 12 MICROGRAMMES, POUDRE POUR INHALATION EN GELULE [Concomitant]
     Route: 055
     Dates: start: 20190319
  8. DEBRIDAT [Concomitant]
     Active Substance: TRIMEBUTINE MALEATE
     Route: 048
  9. RIFATER [Interacting]
     Active Substance: ISONIAZID\PYRAZINAMIDE\RIFAMPIN
     Indication: PULMONARY TUBERCULOMA
     Route: 048
     Dates: start: 20190415
  10. PARACETAMOL [Concomitant]
     Active Substance: ACETAMINOPHEN
     Route: 048

REACTIONS (2)
  - Drug interaction [Unknown]
  - Psychiatric decompensation [Recovered/Resolved]

NARRATIVE: CASE EVENT DATE: 20190419
